FAERS Safety Report 14200469 (Version 2)
Quarter: 2017Q4

REPORT INFORMATION
  Report Type: Spontaneous
  Country: US (occurrence: US)
  Receive Date: 20171117
  Receipt Date: 20171127
  Transmission Date: 20180321
  Serious: Yes (Other)
  Sender: FDA-Public Use
  Company Number: US-BAUSCH-BL-2017-031361

PATIENT
  Age: 83 Year
  Sex: Female

DRUGS (4)
  1. PROLENSA [Suspect]
     Active Substance: BROMFENAC SODIUM
     Indication: PREOPERATIVE CARE
     Dosage: IN LEFT EYE
     Route: 047
     Dates: start: 20170925, end: 20171025
  2. LOTEMAX [Suspect]
     Active Substance: LOTEPREDNOL ETABONATE
     Indication: EYE INFLAMMATION
     Dosage: IN LEFT EYE ON THE FIRST DAY
     Route: 047
     Dates: start: 20171102, end: 20171103
  3. SYNTHROID [Concomitant]
     Active Substance: LEVOTHYROXINE SODIUM
     Indication: PRODUCT USED FOR UNKNOWN INDICATION
  4. LOTEMAX [Suspect]
     Active Substance: LOTEPREDNOL ETABONATE
     Dosage: IN LEFT EYE ON SECOND DAY
     Route: 047
     Dates: start: 20171103, end: 20171104

REACTIONS (4)
  - Vision blurred [Recovering/Resolving]
  - Corneal disorder [Recovering/Resolving]
  - Off label use [Recovered/Resolved]
  - Visual impairment [Recovering/Resolving]

NARRATIVE: CASE EVENT DATE: 2017
